FAERS Safety Report 20345962 (Version 1)
Quarter: 2022Q1

REPORT INFORMATION
  Report Type: Spontaneous
  Country: US (occurrence: None)
  Receive Date: 20220118
  Receipt Date: 20220118
  Transmission Date: 20220423
  Serious: No
  Sender: FDA-Public Use
  Company Number: US-Merck Healthcare KGaA-9259806

PATIENT
  Age: 66 Year
  Sex: Male
  Weight: 95 kg

DRUGS (2)
  1. REBIF [Suspect]
     Active Substance: INTERFERON BETA-1A
     Indication: Multiple sclerosis
     Route: 058
     Dates: start: 20100405
  2. REBIF [Suspect]
     Active Substance: INTERFERON BETA-1A
     Dosage: REBIF PRE FILLED SYRINGE.
     Route: 058
     Dates: start: 20161215

REACTIONS (5)
  - Feeling hot [Unknown]
  - Injection site erythema [Unknown]
  - Injection site pain [Unknown]
  - Product administered at inappropriate site [Unknown]
  - Device end of service [Unknown]
